FAERS Safety Report 23328842 (Version 1)
Quarter: 2023Q4

REPORT INFORMATION
  Report Type: Report from Study
  Country: US (occurrence: US)
  Receive Date: 20231222
  Receipt Date: 20231222
  Transmission Date: 20240110
  Serious: Yes (Other)
  Sender: FDA-Public Use
  Company Number: US-ABBVIE-5551169

PATIENT
  Age: 66 Year
  Sex: Male

DRUGS (2)
  1. RINVOQ [Suspect]
     Active Substance: UPADACITINIB
     Indication: Rheumatoid arthritis
     Route: 048
     Dates: start: 20201019, end: 20231016
  2. ABATACEPT [Concomitant]
     Active Substance: ABATACEPT
     Indication: Product used for unknown indication
     Dates: start: 202311

REACTIONS (8)
  - Tenonectomy [Recovering/Resolving]
  - Device loosening [Recovered/Resolved]
  - Femur fracture [Recovering/Resolving]
  - Rheumatoid arthritis [Unknown]
  - Neuropathy peripheral [Recovering/Resolving]
  - Therapeutic product effect incomplete [Unknown]
  - Skin irritation [Unknown]
  - Fall [Unknown]

NARRATIVE: CASE EVENT DATE: 20230618
